FAERS Safety Report 18770874 (Version 2)
Quarter: 2021Q1

REPORT INFORMATION
  Report Type: Spontaneous
  Country: US (occurrence: US)
  Receive Date: 20210122
  Receipt Date: 20210129
  Transmission Date: 20210419
  Serious: No
  Sender: FDA-Public Use
  Company Number: NVSC2021US012071

PATIENT
  Sex: Male

DRUGS (1)
  1. VOTRIENT [Suspect]
     Active Substance: PAZOPANIB HYDROCHLORIDE
     Indication: CONNECTIVE TISSUE NEOPLASM
     Dosage: 1600 MG, QD
     Route: 048
     Dates: start: 20201208

REACTIONS (1)
  - Paraesthesia [Unknown]
